FAERS Safety Report 9188444 (Version 1)
Quarter: 2012Q4

REPORT INFORMATION
  Report Type: 
  Country: US (occurrence: US)
  Receive Date: 20121205
  Receipt Date: 20121205
  Transmission Date: 20130627
  Serious: Yes (Death)
  Sender: FDA-Public Use
  Company Number: PHEH2012US023601

PATIENT
  Age: 70 None
  Sex: Female

DRUGS (12)
  1. RECLAST [Suspect]
     Indication: OSTEOPOROSIS
     Dosage: 5 mg, UNK
     Route: 042
     Dates: start: 20110718
  2. ZOLOFT [Concomitant]
     Indication: DEPRESSION
     Dosage: 100 mg, QD
  3. PREVACID [Concomitant]
     Indication: GASTROOESOPHAGEAL REFLUX DISEASE
     Dosage: 30 mg, QD
     Route: 048
  4. LASIX [Concomitant]
     Indication: HEART DISEASE CONGENITAL
     Dosage: 40 mg, QD
     Route: 048
  5. POTASSIUM [Concomitant]
     Indication: HYPOKALAEMIA
     Route: 048
  6. COREG [Concomitant]
     Indication: HYPERTENSION
     Route: 048
  7. DIGOXIN [Concomitant]
     Indication: ATRIAL FIBRILLATION
     Dosage: 1 DF, UNK
     Route: 048
  8. VALIUM [Concomitant]
     Indication: ANXIETY
     Dosage: 2.5 mg, BID
     Route: 048
  9. NASOCORT [Concomitant]
     Indication: RHINITIS ALLERGIC
  10. ZYRTEC [Concomitant]
     Indication: ALLERGIC SINUSITIS
     Route: 048
  11. CITRACAL [Concomitant]
     Indication: OSTEOPOROSIS
     Route: 048
  12. COUNTHIN [Concomitant]
     Indication: ATRIAL FIBRILLATION

REACTIONS (1)
  - Death [Fatal]
